FAERS Safety Report 8153585-6 (Version None)
Quarter: 2012Q1

REPORT INFORMATION
  Report Type: 
  Country: None (occurrence: None)
  Receive Date: 20120216
  Receipt Date: 20120216
  Transmission Date: 20120608
  Serious: Yes (Death)
  Sender: FDA-Public Use
  Company Number: None

PATIENT
  Age: 59 Year
  Sex: Female

DRUGS (3)
  1. LORAZEPAM [Concomitant]
  2. REVLIMID [Suspect]
     Indication: MULTIPLE MYELOMA
     Dosage: REVLIMID 25 MG DAILY X14D/21D ORALLY
     Route: 048
     Dates: start: 20110601, end: 20110801
  3. LEVOTHYROXINE SODIUM [Concomitant]

REACTIONS (9)
  - ASTHENIA [None]
  - ANAEMIA [None]
  - THROMBOCYTOPENIA [None]
  - APPETITE DISORDER [None]
  - FATIGUE [None]
  - FAILURE TO THRIVE [None]
  - RESPIRATORY FAILURE [None]
  - TACHYCARDIA [None]
  - HYPOTENSION [None]
